FAERS Safety Report 9635422 (Version 1)
Quarter: 2013Q4

REPORT INFORMATION
  Report Type: Spontaneous
  Country: SE (occurrence: SE)
  Receive Date: 20131021
  Receipt Date: 20131021
  Transmission Date: 20140711
  Serious: Yes (Other)
  Sender: FDA-Public Use
  Company Number: SE-TEVA-436921ISR

PATIENT
  Age: 76 Year
  Sex: Male

DRUGS (1)
  1. SIMVASTATIN TEVA RIMAFAR [Suspect]
     Route: 065
     Dates: end: 20130420

REACTIONS (1)
  - Polyneuropathy [Unknown]
